FAERS Safety Report 6328310-1 (Version None)
Quarter: 2009Q3

REPORT INFORMATION
  Report Type: 
  Country: None (occurrence: None)
  Receive Date: 20090825
  Receipt Date: 20090520
  Transmission Date: 20100115
  Serious: Yes (Hospitalization)
  Sender: FDA-Public Use
  Company Number: US-ABBOTT-09P-163-0574798-00

PATIENT
  Sex: Female
  Weight: 57.204 kg

DRUGS (1)
  1. SYNTHROID [Suspect]
     Indication: HYPOTHYROIDISM
     Dates: start: 19790101, end: 20080101

REACTIONS (4)
  - ATRIAL FIBRILLATION [None]
  - TACHYCARDIA [None]
  - TREMOR [None]
  - VISION BLURRED [None]
